FAERS Safety Report 8681576 (Version 3)
Quarter: 2013Q2

REPORT INFORMATION
  Report Type: Report from Study
  Country: DE (occurrence: DE)
  Receive Date: 20120725
  Receipt Date: 20130523
  Transmission Date: 20140414
  Serious: Yes (Hospitalization)
  Sender: FDA-Public Use
  Company Number: PHHO2012DE010827

PATIENT
  Age: 58 Year
  Sex: Male
  Weight: 70 kg

DRUGS (5)
  1. FORADIL [Suspect]
     Indication: CHRONIC OBSTRUCTIVE PULMONARY DISEASE
     Dates: start: 20120711, end: 20120721
  2. TIOTROPIUM [Suspect]
     Indication: CHRONIC OBSTRUCTIVE PULMONARY DISEASE
     Dates: start: 20120711, end: 20120721
  3. NO TREATMENT RECEIVED [Suspect]
     Indication: CHRONIC OBSTRUCTIVE PULMONARY DISEASE
     Dosage: NO TREATMENT
  4. METOPROLOL [Concomitant]
     Dosage: 47.5 MG, BID
  5. BELOC-ZOC MITE [Concomitant]
     Dosage: 2X1/2
     Route: 048

REACTIONS (1)
  - Stress cardiomyopathy [Recovered/Resolved]
